FAERS Safety Report 19722378 (Version 12)
Quarter: 2022Q2

REPORT INFORMATION
  Report Type: Spontaneous
  Country: GB (occurrence: GB)
  Receive Date: 20210819
  Receipt Date: 20220616
  Transmission Date: 20220720
  Serious: Yes (Death, Life-Threatening, Hospitalization, Other)
  Sender: FDA-Public Use
  Company Number: None

PATIENT

DRUGS (79)
  1. AMOXICILLIN [Suspect]
     Active Substance: AMOXICILLIN
     Indication: Product used for unknown indication
     Dosage: UNK UNK, QID (UNK, 4 TIMES PER DAY)
     Route: 065
     Dates: start: 20200810, end: 20200816
  2. AMOXICILLIN [Suspect]
     Active Substance: AMOXICILLIN
     Dosage: UNK UNK, QD (UNK, ONCE PER DAY)
     Route: 065
     Dates: start: 20200810, end: 20200816
  3. CIPROFLOXACIN [Suspect]
     Active Substance: CIPROFLOXACIN
     Indication: Prophylaxis
     Dosage: UNK, BID (Q12H) (UNK, 2 TIMES PER DAY)
     Route: 065
     Dates: start: 20200827
  4. CIPROFLOXACIN [Suspect]
     Active Substance: CIPROFLOXACIN
     Dosage: UNK, BID (Q12H)
     Route: 065
     Dates: start: 20200827
  5. FLUCONAZOLE [Suspect]
     Active Substance: FLUCONAZOLE
     Indication: Candida infection
     Dosage: UNK, QD
     Route: 065
  6. FORMOTEROL [Suspect]
     Active Substance: FORMOTEROL
     Indication: Hypertension
     Dosage: UNK, BID
     Route: 065
     Dates: start: 20200301
  7. FORMOTEROL [Suspect]
     Active Substance: FORMOTEROL
     Dosage: UNK, BID
     Route: 065
     Dates: start: 20200301
  8. CLOPIDOGREL [Suspect]
     Active Substance: CLOPIDOGREL BISULFATE
     Indication: Hypertension
     Dosage: UNK UNK, QD (UNK, ONCE PER DAY)
     Route: 065
     Dates: start: 20200827
  9. CYCLIZINE [Suspect]
     Active Substance: CYCLIZINE
     Indication: Neutropenic sepsis
     Dosage: UNK, BID UNK, 2 TIMES PER DAY
     Route: 065
  10. CYCLIZINE [Suspect]
     Active Substance: CYCLIZINE
     Indication: Vomiting
     Dosage: UNK, UNK (0.25)
     Route: 065
  11. CYCLIZINE [Suspect]
     Active Substance: CYCLIZINE
     Dosage: UNK,  UNK (1 IN 0.25 DAY)
     Route: 065
  12. CYCLIZINE [Suspect]
     Active Substance: CYCLIZINE
     Dosage: 4 MG, QD
     Route: 065
  13. ALBUTEROL [Suspect]
     Active Substance: ALBUTEROL
     Indication: Prophylaxis
     Dosage: UNK, UNK
     Route: 065
  14. ZOPICLONE [Suspect]
     Active Substance: ZOPICLONE
     Indication: Prophylaxis
     Dosage: UNK, QD
     Route: 065
     Dates: start: 20200731
  15. ZOPICLONE [Suspect]
     Active Substance: ZOPICLONE
     Dosage: 1 MG, QD
     Route: 065
  16. CLOPIDOGREL BISULFATE [Suspect]
     Active Substance: CLOPIDOGREL BISULFATE
     Indication: Hypertension
     Dosage: UNK
     Route: 065
  17. BENZYDAMINE HYDROCHLORIDE [Suspect]
     Active Substance: BENZYDAMINE HYDROCHLORIDE
     Indication: Prophylaxis
     Dosage: UNK, UNK
     Route: 065
     Dates: start: 20200819
  18. MORPHINE SULFATE [Suspect]
     Active Substance: MORPHINE SULFATE
     Indication: Pain
     Dosage: UNK, QD
     Route: 065
     Dates: start: 20200727
  19. MORPHINE SULFATE [Suspect]
     Active Substance: MORPHINE SULFATE
     Indication: Prophylaxis
     Dosage: UNK, QD
     Route: 065
     Dates: start: 20200731
  20. MORPHINE SULFATE [Suspect]
     Active Substance: MORPHINE SULFATE
     Dosage: UNK, QD
     Route: 065
     Dates: start: 20200727
  21. MORPHINE SULFATE [Suspect]
     Active Substance: MORPHINE SULFATE
     Dosage: 1 MG, QD
     Route: 065
     Dates: start: 20200825
  22. ACETAMINOPHEN\CODEINE PHOSPHATE [Suspect]
     Active Substance: ACETAMINOPHEN\CODEINE PHOSPHATE
     Indication: Pain
     Dosage: UNK, BID
     Route: 065
  23. ACETAMINOPHEN\CODEINE PHOSPHATE [Suspect]
     Active Substance: ACETAMINOPHEN\CODEINE PHOSPHATE
     Indication: Headache
     Dosage: UNK, QD
     Route: 065
  24. ACETAMINOPHEN\CODEINE PHOSPHATE [Suspect]
     Active Substance: ACETAMINOPHEN\CODEINE PHOSPHATE
     Dosage: UNK
     Route: 065
  25. ACETAMINOPHEN\CODEINE PHOSPHATE [Suspect]
     Active Substance: ACETAMINOPHEN\CODEINE PHOSPHATE
     Dosage: UNK
     Route: 065
  26. SPIRIVA [Suspect]
     Active Substance: TIOTROPIUM BROMIDE MONOHYDRATE
     Indication: Chronic obstructive pulmonary disease
     Dosage: UNK
     Route: 065
  27. SPIRIVA [Suspect]
     Active Substance: TIOTROPIUM BROMIDE MONOHYDRATE
     Dosage: UNK UNK, QD
     Route: 065
  28. SPIRIVA [Suspect]
     Active Substance: TIOTROPIUM BROMIDE MONOHYDRATE
     Dosage: UNK, QD
     Route: 065
  29. SPIRIVA [Suspect]
     Active Substance: TIOTROPIUM BROMIDE MONOHYDRATE
     Dosage: 1 DF, QD
     Route: 065
  30. AMLODIPINE [Suspect]
     Active Substance: AMLODIPINE BESYLATE
     Indication: Hypertension
     Dosage: UNK, QD
     Route: 065
  31. AMLODIPINE [Suspect]
     Active Substance: AMLODIPINE BESYLATE
     Dosage: UNK, QD
     Route: 065
  32. AMLODIPINE [Suspect]
     Active Substance: AMLODIPINE BESYLATE
     Dosage: UNK, QD
     Route: 065
  33. AMLODIPINE [Suspect]
     Active Substance: AMLODIPINE BESYLATE
     Dosage: UNK, QD
     Route: 065
  34. AMLODIPINE [Suspect]
     Active Substance: AMLODIPINE BESYLATE
     Dosage: UNK
     Route: 065
  35. AMLODIPINE [Suspect]
     Active Substance: AMLODIPINE BESYLATE
     Dosage: 1 MG, QD
     Route: 065
  36. AMLODIPINE [Suspect]
     Active Substance: AMLODIPINE BESYLATE
     Dosage: UNK, QD
     Route: 065
  37. AMLODIPINE [Suspect]
     Active Substance: AMLODIPINE BESYLATE
     Dosage: UNK, QD
     Route: 065
  38. AMLODIPINE [Suspect]
     Active Substance: AMLODIPINE BESYLATE
     Dosage: UNK, QD
     Route: 065
  39. ATEZOLIZUMAB [Suspect]
     Active Substance: ATEZOLIZUMAB
     Indication: Non-small cell lung cancer
     Dosage: 1200 MG
     Route: 042
     Dates: start: 20200729
  40. ATEZOLIZUMAB [Suspect]
     Active Substance: ATEZOLIZUMAB
     Indication: Transitional cell carcinoma
     Dosage: 1200 MG,  TIW
     Route: 042
     Dates: start: 20200819
  41. ATEZOLIZUMAB [Suspect]
     Active Substance: ATEZOLIZUMAB
     Dosage: UNK
     Route: 065
  42. CARBOPLATIN [Suspect]
     Active Substance: CARBOPLATIN
     Indication: Non-small cell lung cancer
     Dosage: 450 MG, ONCE PER DAY
     Route: 065
     Dates: start: 20200729
  43. CARBOPLATIN [Suspect]
     Active Substance: CARBOPLATIN
     Dosage: 450 MG, QD (UNK, UNK (ENDOTRACHEOPULMONARY INSTILLATION, POWDER FOR SOLUTION 450 MG, ONCE PER DAY))
     Route: 065
     Dates: start: 20200729
  44. ZOLMITRIPTAN [Suspect]
     Active Substance: ZOLMITRIPTAN
     Indication: Pain
     Dosage: UNK, QD
     Route: 065
  45. ETOPOSIDE [Suspect]
     Active Substance: ETOPOSIDE
     Indication: Non-small cell lung cancer
     Dosage: 148 MG,  ONCE PER DAY
     Route: 065
     Dates: start: 20200729
  46. ETOPOSIDE [Suspect]
     Active Substance: ETOPOSIDE
     Dosage: 600 MG, QD
     Route: 048
     Dates: start: 20200730
  47. LACTULOSE [Suspect]
     Active Substance: LACTULOSE
     Indication: Prophylaxis
     Dosage: UNK, BID
     Route: 065
  48. LACTULOSE [Suspect]
     Active Substance: LACTULOSE
     Dosage: UNK, QD
     Route: 065
  49. LACTULOSE [Suspect]
     Active Substance: LACTULOSE
     Dosage: UNK, QD
     Route: 065
  50. LACTULOSE [Suspect]
     Active Substance: LACTULOSE
     Dosage: UNK, QD
     Route: 065
  51. LACTULOSE [Suspect]
     Active Substance: LACTULOSE
     Dosage: UNK, BID
     Route: 065
  52. LACTULOSE [Suspect]
     Active Substance: LACTULOSE
     Dosage: UNK, QD
     Route: 065
  53. LACTULOSE [Suspect]
     Active Substance: LACTULOSE
     Dosage: UNK, BID
     Route: 065
  54. LACTULOSE [Suspect]
     Active Substance: LACTULOSE
     Dosage: UNK, 2 TIMES PER DAY
     Route: 065
  55. LACTULOSE [Suspect]
     Active Substance: LACTULOSE
     Dosage: UNK, QD
     Route: 065
  56. LACTULOSE [Suspect]
     Active Substance: LACTULOSE
     Dosage: UNK, BID
     Route: 065
  57. LANSOPRAZOLE [Suspect]
     Active Substance: LANSOPRAZOLE
     Indication: Prophylaxis
     Dosage: UNK, QD
     Route: 065
     Dates: start: 20170101
  58. LANSOPRAZOLE [Suspect]
     Active Substance: LANSOPRAZOLE
     Dosage: 1 MG, QD
     Route: 065
  59. DEXAMETHASONE [Suspect]
     Active Substance: DEXAMETHASONE
     Indication: Dysphagia
     Dosage: UNK, QD
     Route: 065
     Dates: start: 20200826
  60. LINEZOLID [Suspect]
     Active Substance: LINEZOLID
     Indication: Neutropenic sepsis
     Dosage: UNK, UNK
     Route: 065
     Dates: start: 20200830
  61. LINEZOLID [Suspect]
     Active Substance: LINEZOLID
     Dosage: UNK
     Route: 065
     Dates: start: 20200830
  62. VENLAFAXINE [Suspect]
     Active Substance: VENLAFAXINE HYDROCHLORIDE
     Indication: Depression
     Dosage: UNK, QD
     Route: 065
     Dates: start: 20200820
  63. VENLAFAXINE [Suspect]
     Active Substance: VENLAFAXINE HYDROCHLORIDE
     Dosage: UNK, QD
     Route: 065
  64. VENLAFAXINE [Suspect]
     Active Substance: VENLAFAXINE HYDROCHLORIDE
     Dosage: UNK,  UNK
     Route: 065
  65. VORICONAZOLE [Suspect]
     Active Substance: VORICONAZOLE
     Indication: Neutropenic sepsis
     Dosage: UNK, QD
     Route: 065
     Dates: start: 20200830
  66. VORICONAZOLE [Suspect]
     Active Substance: VORICONAZOLE
     Dosage: 1 DF, QD
     Route: 065
  67. TIOTROPIUM BROMIDE [Suspect]
     Active Substance: TIOTROPIUM BROMIDE
     Indication: Chronic obstructive pulmonary disease
     Dosage: UNK, QD (ONCE A DAY)
     Route: 065
  68. TIOTROPIUM BROMIDE [Suspect]
     Active Substance: TIOTROPIUM BROMIDE
     Dosage: UNK,  UNK
     Route: 065
  69. METOCLOPRAMIDE [Concomitant]
     Active Substance: METOCLOPRAMIDE
     Indication: Vomiting
     Dosage: UNK, QD
     Route: 065
  70. METOCLOPRAMIDE [Concomitant]
     Active Substance: METOCLOPRAMIDE
     Dosage: 1 DF, BID
     Route: 065
  71. MAGNESIUM [Concomitant]
     Active Substance: MAGNESIUM
     Indication: Product used for unknown indication
     Dosage: UNK,  UNK
     Route: 065
     Dates: start: 20200819, end: 20200819
  72. PHOSPHORIC ACID [Concomitant]
     Active Substance: PHOSPHORIC ACID
     Indication: Product used for unknown indication
     Dosage: UNK, QD
     Route: 065
     Dates: start: 20200825, end: 20200825
  73. PHOSPHORIC ACID [Concomitant]
     Active Substance: PHOSPHORIC ACID
     Dosage: UNK
     Route: 065
     Dates: start: 20200825, end: 20200825
  74. PHOSPHORIC ACID [Concomitant]
     Active Substance: PHOSPHORIC ACID
     Dosage: UNK, BID
     Route: 065
     Dates: end: 20200825
  75. PHOSPHORIC ACID [Concomitant]
     Active Substance: PHOSPHORIC ACID
     Dosage: 1 DF
     Route: 065
     Dates: end: 20200825
  76. SANDO-K [Concomitant]
     Indication: Prophylaxis
     Dosage: UNK, BID
     Route: 065
     Dates: start: 20200819
  77. SANDO-K [Concomitant]
     Dosage: UNK, UNK (5QD)
     Route: 065
     Dates: start: 20200828, end: 20200901
  78. POTASSIUM CHLORIDE [Concomitant]
     Active Substance: POTASSIUM CHLORIDE
     Indication: Prophylaxis
     Dosage: 0.5 MG, QD
     Route: 065
     Dates: start: 20200819
  79. ONDANSETRON [Concomitant]
     Active Substance: ONDANSETRON
     Indication: Product used for unknown indication
     Dosage: 8 MG
     Route: 065
     Dates: start: 20200729, end: 20200729

REACTIONS (32)
  - Death [Fatal]
  - Mouth ulceration [Fatal]
  - Constipation [Fatal]
  - Hypomagnesaemia [Fatal]
  - Anaemia [Fatal]
  - Nausea [Fatal]
  - Headache [Fatal]
  - Dyspnoea [Fatal]
  - Dehydration [Fatal]
  - Mucosal inflammation [Fatal]
  - Productive cough [Fatal]
  - Vomiting [Fatal]
  - Decreased appetite [Fatal]
  - Hypokalaemia [Fatal]
  - Neutropenic sepsis [Fatal]
  - Diarrhoea [Fatal]
  - Product use in unapproved indication [Fatal]
  - Dysphagia [Fatal]
  - Depression [Fatal]
  - Balance disorder [Fatal]
  - Asthenia [Fatal]
  - Gait disturbance [Fatal]
  - Nervous system disorder [Fatal]
  - Neutrophil count decreased [Fatal]
  - Asthenia [Fatal]
  - Skin candida [Fatal]
  - Candida infection [Not Recovered/Not Resolved]
  - Decreased appetite [Recovered/Resolved]
  - Vomiting [Not Recovered/Not Resolved]
  - Balance disorder [Unknown]
  - Anaemia [Recovered/Resolved]
  - Hypomagnesaemia [Recovered/Resolved]

NARRATIVE: CASE EVENT DATE: 20200730
